FAERS Safety Report 8226264-4 (Version None)
Quarter: 2012Q1

REPORT INFORMATION
  Report Type: 
  Country: None (occurrence: None)
  Receive Date: 20120321
  Receipt Date: 20120313
  Transmission Date: 20120608
  Serious: Yes (Hospitalization)
  Sender: FDA-Public Use
  Company Number: PHEH2012US004832

PATIENT
  Sex: Female

DRUGS (7)
  1. LEXAPRO [Concomitant]
     Dosage: 20 MG, QD
  2. LIPITOR [Concomitant]
     Dosage: 10 MG, QD
  3. METOPROLOL SUCCINATE [Concomitant]
     Dosage: 100 MG, QD
  4. GILENYA [Suspect]
     Indication: MULTIPLE SCLEROSIS
     Dosage: 0.5 MG, DAILY
     Route: 048
     Dates: start: 20110125
  5. LISINOPRIL [Concomitant]
     Dosage: 10 MG, QD
  6. WELLBUTRIN [Concomitant]
     Dosage: 150 MG, BID
  7. ACTONEL [Concomitant]
     Dosage: 35 MG, QW

REACTIONS (4)
  - RENAL FAILURE ACUTE [None]
  - MENTAL STATUS CHANGES [None]
  - ABNORMAL BEHAVIOUR [None]
  - HYPOTENSION [None]
